FAERS Safety Report 21587683 (Version 1)
Quarter: 2022Q4

REPORT INFORMATION
  Report Type: Spontaneous
  Country: PR (occurrence: PR)
  Receive Date: 20221114
  Receipt Date: 20221114
  Transmission Date: 20230112
  Serious: No
  Sender: FDA-Public Use
  Company Number: PR-BIOGEN-2022BI01168779

PATIENT
  Age: 36 Year
  Sex: Female
  Weight: 83.990 kg

DRUGS (1)
  1. TYSABRI [Suspect]
     Active Substance: NATALIZUMAB
     Indication: Multiple sclerosis
     Route: 050
     Dates: start: 20191128, end: 202208

REACTIONS (1)
  - Nodule [Unknown]

NARRATIVE: CASE EVENT DATE: 20221001
